FAERS Safety Report 25810768 (Version 2)
Quarter: 2025Q4

REPORT INFORMATION
  Report Type: Spontaneous
  Country: QA (occurrence: QA)
  Receive Date: 20250917
  Receipt Date: 20251006
  Transmission Date: 20260118
  Serious: Yes (Life-Threatening)
  Sender: AMGEN
  Company Number: QA-AMGEN-QATSP2025182594

PATIENT
  Sex: Female

DRUGS (1)
  1. ADALIMUMAB [Suspect]
     Active Substance: ADALIMUMAB
     Indication: Colitis ulcerative
     Dosage: UNK
     Route: 065
     Dates: start: 2023

REACTIONS (3)
  - Cardiac failure [Unknown]
  - Dilated cardiomyopathy [Unknown]
  - Therapy non-responder [Unknown]
